FAERS Safety Report 5493464-6 (Version None)
Quarter: 2007Q4

REPORT INFORMATION
  Report Type: 
  Country: None (occurrence: None)
  Receive Date: 20071023
  Receipt Date: 20071010
  Transmission Date: 20080405
  Serious: Yes (Hospitalization, Other)
  Sender: FDA-Public Use
  Company Number: US-ELI_LILLY_AND_COMPANY-US200709002012

PATIENT
  Age: 80 Year
  Sex: Female

DRUGS (2)
  1. GEMZAR [Suspect]
     Indication: OVARIAN CANCER
     Dates: start: 20060101
  2. GEMZAR [Suspect]
     Dosage: UNK, UNK
     Dates: start: 20070101

REACTIONS (4)
  - PNEUMONIA [None]
  - PULMONARY FIBROSIS [None]
  - PYREXIA [None]
  - THROMBOCYTOPENIC PURPURA [None]
